FAERS Safety Report 7089472-4 (Version None)
Quarter: 2010Q4

REPORT INFORMATION
  Report Type: 
  Country: None (occurrence: None)
  Receive Date: 20101108
  Receipt Date: 20101102
  Transmission Date: 20110411
  Serious: Yes (Death, Hospitalization)
  Sender: FDA-Public Use
  Company Number: FR-CELGENEUS-056-21880-10030592

PATIENT
  Sex: Male
  Weight: 93 kg

DRUGS (6)
  1. REVLIMID [Suspect]
     Indication: B-CELL LYMPHOMA
     Route: 048
     Dates: start: 20091230
  2. REVLIMID [Suspect]
     Route: 048
     Dates: start: 20100224, end: 20100302
  3. XANAX [Concomitant]
     Indication: ANXIETY
     Route: 065
  4. DEROXAT [Concomitant]
     Indication: DEPRESSION
     Route: 065
  5. IMOVANE [Concomitant]
     Indication: INSOMNIA
     Route: 065
  6. ASPIRIN [Concomitant]
     Route: 065

REACTIONS (2)
  - ACUTE MYELOID LEUKAEMIA [None]
  - LYMPHOMA [None]
